FAERS Safety Report 10222172 (Version 1)
Quarter: 2014Q2

REPORT INFORMATION
  Report Type: Spontaneous
  Country: US (occurrence: US)
  Receive Date: 20140606
  Receipt Date: 20140606
  Transmission Date: 20141212
  Serious: Yes (Other)
  Sender: FDA-Public Use
  Company Number: US-SA-2014SA072513

PATIENT
  Age: 71 Year
  Sex: Female

DRUGS (1)
  1. LANTUS [Suspect]
     Indication: TYPE 1 DIABETES MELLITUS
     Dosage: STARTED 10 TO 12 YEARS AGO DOSE:100 UNIT(S)
     Route: 065

REACTIONS (3)
  - Pancreatitis [Not Recovered/Not Resolved]
  - Drug dose omission [Unknown]
  - Drug administration error [Unknown]
